FAERS Safety Report 4694214-3 (Version None)
Quarter: 2005Q2

REPORT INFORMATION
  Report Type: 
  Country: None (occurrence: None)
  Receive Date: 20050616
  Receipt Date: 20050616
  Transmission Date: 20051028
  Serious: No
  Sender: FDA-Public Use
  Company Number: None

PATIENT
  Age: 86 Year
  Sex: Female
  Weight: 52 kg

DRUGS (9)
  1. CELEBREX [Suspect]
     Indication: OSTEOARTHRITIS
     Dosage: 200 MG DAILY
  2. CELEBREX [Suspect]
     Indication: RHEUMATOID ARTHRITIS
     Dosage: 200 MG DAILY
  3. KEFLEX [Concomitant]
  4. NASACORT [Concomitant]
  5. WARFARIN [Concomitant]
  6. VIT C [Concomitant]
  7. VIT E [Concomitant]
  8. GLUCOSAMINE [Concomitant]
  9. CHONDROTIN [Concomitant]

REACTIONS (11)
  - AZOTAEMIA [None]
  - DECREASED APPETITE [None]
  - FATIGUE [None]
  - HYPOACUSIS [None]
  - INTERNATIONAL NORMALISED RATIO INCREASED [None]
  - NAUSEA [None]
  - RENAL FAILURE ACUTE [None]
  - RESPIRATORY DISORDER [None]
  - RESPIRATORY RATE INCREASED [None]
  - RETCHING [None]
  - VIRAL INFECTION [None]
